FAERS Safety Report 4945151-8 (Version None)
Quarter: 2006Q1

REPORT INFORMATION
  Report Type: 
  Country: None (occurrence: None)
  Receive Date: 20060117
  Receipt Date: 20050207
  Transmission Date: 20060701
  Serious: Yes (Death, Hospitalization)
  Sender: FDA-Public Use
  Company Number: A03200403706

PATIENT
  Age: 75 Year
  Sex: Female
  Weight: 77.1115 kg

DRUGS (10)
  1. PLAVIX [Suspect]
     Indication: STENT PLACEMENT
     Dosage: 75 MG QD - ORAL
     Route: 048
     Dates: start: 20040811, end: 20040905
  2. ACETYLSALICYLIC ACID SRT [Concomitant]
  3. METOPROLOL TARTRATE [Concomitant]
  4. FUROSEMIDE [Concomitant]
  5. SIMVASTATIN [Concomitant]
  6. POTASSIUM [Concomitant]
  7. LEVOTHYROXINE SODIUM [Concomitant]
  8. VALDECOXIB [Concomitant]
  9. AMLODIPINE BESYLATE [Concomitant]
  10. ESCITALOPRAM OXALATE [Concomitant]

REACTIONS (1)
  - PULMONARY ALVEOLAR HAEMORRHAGE [None]
